FAERS Safety Report 4508618-2 (Version None)
Quarter: 2004Q4

REPORT INFORMATION
  Report Type: 
  Country: None (occurrence: None)
  Receive Date: 20041123
  Receipt Date: 20040503
  Transmission Date: 20050328
  Serious: No
  Sender: FDA-Public Use
  Company Number: US-GLAXOSMITHKLINE-A0509236A

PATIENT
  Age: 38 Year
  Sex: Female

DRUGS (4)
  1. WELLBUTRIN SR [Suspect]
     Indication: INSOMNIA
     Dosage: 150MG PER DAY
     Route: 048
     Dates: start: 20030401, end: 20040101
  2. ESTRACE [Concomitant]
  3. PROVERA [Concomitant]
  4. PRENATAL VITAMINS [Concomitant]

REACTIONS (1)
  - ALOPECIA [None]
